FAERS Safety Report 7593855-3 (Version None)
Quarter: 2011Q3

REPORT INFORMATION
  Report Type: 
  Country: None (occurrence: None)
  Receive Date: 20110706
  Receipt Date: 20110630
  Transmission Date: 20111222
  Serious: Yes (Other)
  Sender: FDA-Public Use
  Company Number: US-PFIZER INC-2011150008

PATIENT
  Age: 54 Year
  Sex: Male

DRUGS (1)
  1. LIPITOR [Suspect]
     Indication: BLOOD CHOLESTEROL ABNORMAL

REACTIONS (7)
  - APHASIA [None]
  - MYALGIA [None]
  - AMNESIA [None]
  - POLYNEUROPATHY [None]
  - NEURALGIA [None]
  - COGNITIVE DISORDER [None]
  - MUSCLE ATROPHY [None]
